FAERS Safety Report 10195464 (Version 2)
Quarter: 2014Q2

REPORT INFORMATION
  Report Type: Spontaneous
  Country: US (occurrence: US)
  Receive Date: 20140526
  Receipt Date: 20140605
  Transmission Date: 20141212
  Serious: No
  Sender: FDA-Public Use
  Company Number: US-009507513-1405USA004271

PATIENT
  Sex: Female

DRUGS (5)
  1. OXYTROL FOR WOMEN [Suspect]
     Indication: PRODUCT USED FOR UNKNOWN INDICATION
     Dosage: PATCHES
     Route: 062
     Dates: start: 20131209
  2. ESORB [Concomitant]
     Indication: CARDIAC DISORDER
  3. ZOCOR [Concomitant]
     Indication: CARDIAC DISORDER
  4. METOPROLOL [Concomitant]
     Indication: CARDIAC DISORDER
  5. AMLODIPINE [Concomitant]
     Indication: CARDIAC DISORDER

REACTIONS (1)
  - Drug ineffective [Unknown]
